FAERS Safety Report 9916266 (Version 1)
Quarter: 2014Q1

REPORT INFORMATION
  Report Type: Spontaneous
  Country: US (occurrence: US)
  Receive Date: 20140221
  Receipt Date: 20140221
  Transmission Date: 20141002
  Serious: No
  Sender: FDA-Public Use
  Company Number: US-BAYER-2014-027562

PATIENT
  Age: 65 Year
  Sex: Female
  Weight: 79.37 kg

DRUGS (6)
  1. ALEVE GELCAPS [Suspect]
     Indication: ARTHRITIS
     Dosage: 1 DF, ONCE
     Route: 048
     Dates: start: 20140219, end: 20140219
  2. LANTUS [Concomitant]
  3. HUMALOG [Concomitant]
  4. ENALAPRIL [Concomitant]
  5. PLAVIX [Concomitant]
  6. FAMOTIDINE [Concomitant]

REACTIONS (1)
  - Drug ineffective [None]
